FAERS Safety Report 4853760-X (Version None)
Quarter: 2005Q4

REPORT INFORMATION
  Report Type: 
  Country: None (occurrence: None)
  Receive Date: 20051212
  Receipt Date: 20051108
  Transmission Date: 20060501
  Serious: Yes (Death)
  Sender: FDA-Public Use
  Company Number: MK200512-0067-1

PATIENT
  Age: 59 Year

DRUGS (3)
  1. ACETAMINOPHEN W/ CODEINE TAB [Suspect]
     Dates: start: 20040101
  2. ACETAMINOPHEN/HYDROCODONE [Suspect]
  3. ETHANOL [Suspect]

REACTIONS (3)
  - ALCOHOL USE [None]
  - COMPLETED SUICIDE [None]
  - MULTIPLE DRUG OVERDOSE INTENTIONAL [None]
